FAERS Safety Report 14420008 (Version 1)
Quarter: 2018Q1

REPORT INFORMATION
  Report Type: Spontaneous
  Country: PL (occurrence: PL)
  Receive Date: 20180122
  Receipt Date: 20180122
  Transmission Date: 20180509
  Serious: Yes (Other)
  Sender: FDA-Public Use
  Company Number: PL-MYLANLABS-2018M1005017

PATIENT
  Age: 6 Year

DRUGS (1)
  1. KLACID 250MG/5ML GRANULES FOR ORAL SUSPENSION [Suspect]
     Active Substance: CLARITHROMYCIN
     Indication: PRODUCT USED FOR UNKNOWN INDICATION
     Dosage: 250MG/5ML
     Route: 048

REACTIONS (2)
  - Feeling cold [Unknown]
  - Dysgeusia [Unknown]
